FAERS Safety Report 13349688 (Version 1)
Quarter: 2017Q1

REPORT INFORMATION
  Report Type: Spontaneous
  Country: US (occurrence: US)
  Receive Date: 20170320
  Receipt Date: 20170320
  Transmission Date: 20170429
  Serious: No
  Sender: FDA-Public Use
  Company Number: US-TEVA-726490ACC

PATIENT
  Sex: Female
  Weight: 72.64 kg

DRUGS (2)
  1. TRI-LEGEST FE 28 DAY [Suspect]
     Active Substance: ETHINYL ESTRADIOL\NORETHINDRONE ACETATE
     Indication: CONTRACEPTION
  2. TRI-LEGEST FE 28 DAY [Suspect]
     Active Substance: ETHINYL ESTRADIOL\NORETHINDRONE ACETATE
     Dates: start: 2016

REACTIONS (6)
  - Blood testosterone increased [Unknown]
  - Alopecia [Unknown]
  - Weight decreased [Unknown]
  - Acne [Unknown]
  - Blood oestrogen decreased [Unknown]
  - Hypertrichosis [Recovering/Resolving]
